FAERS Safety Report 13591646 (Version 1)
Quarter: 2017Q2

REPORT INFORMATION
  Report Type: Spontaneous
  Country: US (occurrence: US)
  Receive Date: 20170530
  Receipt Date: 20170530
  Transmission Date: 20170830
  Serious: Yes (Other)
  Sender: FDA-Public Use
  Company Number: None

PATIENT
  Age: 47 Year
  Sex: Female

DRUGS (1)
  1. TALTZ [Suspect]
     Active Substance: IXEKIZUMAB
     Indication: PSORIASIS
     Dosage: ?          OTHER FREQUENCY:ONCE;?
     Route: 058
     Dates: start: 20170519

REACTIONS (6)
  - Injection site erythema [None]
  - Injection site bruising [None]
  - Chest pain [None]
  - Injection site warmth [None]
  - Fatigue [None]
  - Injection site pain [None]

NARRATIVE: CASE EVENT DATE: 20170519
